FAERS Safety Report 5666785-1 (Version None)
Quarter: 2008Q1

REPORT INFORMATION
  Report Type: 
  Country: None (occurrence: None)
  Receive Date: 20080315
  Receipt Date: 20080122
  Transmission Date: 20080703
  Serious: Yes (Other)
  Sender: FDA-Public Use
  Company Number: PR-ABBOTT-08P-131-0434884-00

PATIENT
  Age: 47 Year
  Sex: Female

DRUGS (2)
  1. HUMIRA [Suspect]
     Indication: RHEUMATOID ARTHRITIS
     Route: 030
     Dates: start: 20070801, end: 20080117
  2. PREDNISONE [Concomitant]
     Indication: ARTHRITIS
     Route: 048

REACTIONS (4)
  - INJECTION SITE INFLAMMATION [None]
  - PARAESTHESIA [None]
  - PARAESTHESIA ORAL [None]
  - TREMOR [None]
